FAERS Safety Report 9186200 (Version 4)
Quarter: 2013Q2

REPORT INFORMATION
  Report Type: Spontaneous
  Country: US (occurrence: US)
  Receive Date: 20130325
  Receipt Date: 20130617
  Transmission Date: 20140414
  Serious: Yes (Hospitalization)
  Sender: FDA-Public Use
  Company Number: US-GLAXOSMITHKLINE-A1016931A

PATIENT
  Age: 50 Year
  Sex: Female

DRUGS (1)
  1. FLOLAN [Suspect]
     Indication: COR PULMONALE CHRONIC
     Dosage: 8NGKM CONTINUOUS
     Route: 042
     Dates: start: 20130109

REACTIONS (6)
  - Diarrhoea [Unknown]
  - Device infusion issue [Unknown]
  - Hypotension [Unknown]
  - Catheter site pruritus [Unknown]
  - Fluid overload [Unknown]
  - Hypertension [Unknown]
